FAERS Safety Report 9880485 (Version 2)
Quarter: 2014Q1

REPORT INFORMATION
  Report Type: Report from Study
  Country: AR (occurrence: AR)
  Receive Date: 20140207
  Receipt Date: 20140218
  Transmission Date: 20141002
  Serious: Yes (Hospitalization, Other)
  Sender: FDA-Public Use
  Company Number: AR-ROCHE-1343168

PATIENT
  Age: 67 Year
  Sex: Male
  Weight: 70 kg

DRUGS (8)
  1. AVASTIN [Suspect]
     Indication: COLORECTAL CANCER METASTATIC
     Route: 065
     Dates: start: 201109
  2. CAPECITABINE [Suspect]
     Indication: COLORECTAL CANCER METASTATIC
     Route: 048
     Dates: start: 201202
  3. CAPECITABINE [Suspect]
     Route: 048
     Dates: start: 201206
  4. CAPECITABINE [Suspect]
     Route: 048
     Dates: start: 201305
  5. OXALIPLATIN [Concomitant]
     Indication: COLORECTAL CANCER METASTATIC
     Dosage: 85 MG/M2 D1 Y 15
     Route: 065
     Dates: start: 201109
  6. FLUOROURACIL [Concomitant]
     Indication: COLORECTAL CANCER METASTATIC
     Dosage: D 1, 8 Y 15
     Route: 065
     Dates: start: 201109
  7. LEUCOVORIN [Concomitant]
     Indication: COLORECTAL CANCER METASTATIC
     Dosage: 30 MG/M2 D1, 8 Y 15
     Route: 065
     Dates: start: 201109
  8. IRINOTECAN [Concomitant]
     Dosage: 180 MG/M2 D1 Y 15
     Route: 065
     Dates: start: 201302

REACTIONS (10)
  - Large intestinal obstruction [Unknown]
  - Anaphylactic reaction [Unknown]
  - Hypertension [Unknown]
  - Neuropathy peripheral [Unknown]
  - Disease progression [Unknown]
  - Tumour marker increased [Unknown]
  - Lymphadenopathy [Unknown]
  - Headache [Unknown]
  - Tumour invasion [Unknown]
  - Epistaxis [Recovered/Resolved]
